FAERS Safety Report 5956503-1 (Version None)
Quarter: 2008Q4

REPORT INFORMATION
  Report Type: 
  Country: None (occurrence: None)
  Receive Date: 20081118
  Receipt Date: 20081110
  Transmission Date: 20090506
  Serious: Yes (Other)
  Sender: FDA-Public Use
  Company Number: A0756913B

PATIENT
  Sex: Female
  Weight: 2.2 kg

DRUGS (6)
  1. LAMICTAL [Suspect]
     Indication: BIPOLAR DISORDER
     Dosage: 100MG PER DAY
  2. ABILIFY [Concomitant]
     Dosage: 10MG PER DAY
  3. XANAX [Concomitant]
     Dosage: 3MG PER DAY
  4. MIRTAZAPINE [Concomitant]
     Dosage: 15MG PER DAY
  5. VITAMIN TAB [Concomitant]
  6. PROZAC [Concomitant]

REACTIONS (3)
  - DRUG EXPOSURE DURING PREGNANCY [None]
  - FOETAL GROWTH RETARDATION [None]
  - PREMATURE BABY [None]
